FAERS Safety Report 4319163-1 (Version None)
Quarter: 2004Q1

REPORT INFORMATION
  Report Type: 
  Country: None (occurrence: None)
  Receive Date: 20040318
  Receipt Date: 20010705
  Transmission Date: 20041129
  Serious: Yes (Hospitalization)
  Sender: FDA-Public Use
  Company Number: 64886-2001-009

PATIENT
  Age: 61 Year
  Sex: Female

DRUGS (6)
  1. METHOTREXATE [Suspect]
     Indication: BREAST CANCER
     Dosage: 95 MG PER CYLCE IV
  2. FLUOROURACIL [Suspect]
     Indication: BREAST CANCER
     Dosage: 1125 MG PER CYCLE IV
  3. CYCLOPHOSPHAMIDE [Suspect]
     Indication: BREAST CANCER
     Dosage: 1420 MG PER CYCLE IV
     Route: 042
  4. ONDANSETRON HCL [Concomitant]
  5. DEXAMETHASONE [Concomitant]
  6. TAMOXIFEN CITRATE [Concomitant]

REACTIONS (2)
  - PAIN IN EXTREMITY [None]
  - PERIPHERAL ISCHAEMIA [None]
